FAERS Safety Report 10386675 (Version 3)
Quarter: 2014Q3

REPORT INFORMATION
  Report Type: Spontaneous
  Country: US (occurrence: US)
  Receive Date: 20140815
  Receipt Date: 20140829
  Transmission Date: 20150326
  Serious: Yes (Other)
  Sender: FDA-Public Use
  Company Number: US-JNJFOC-20140810660

PATIENT
  Age: 41 Year
  Sex: Female
  Weight: 83.92 kg

DRUGS (3)
  1. SURGICEL [Suspect]
     Active Substance: CELLULOSE, OXIDIZED
     Indication: PRODUCT USED FOR UNKNOWN INDICATION
     Route: 065
     Dates: start: 20131029, end: 20131029
  2. LOCAL HAEMOSTATICS [Concomitant]
     Active Substance: UNSPECIFIED INGREDIENT
     Indication: PRODUCT USED FOR UNKNOWN INDICATION
     Route: 065
     Dates: start: 20131029, end: 20131029
  3. EVITHROM [Suspect]
     Active Substance: THROMBIN HUMAN
     Indication: PRODUCT USED FOR UNKNOWN INDICATION
     Route: 061
     Dates: start: 20131029, end: 20131029

REACTIONS (4)
  - Wound infection staphylococcal [Not Recovered/Not Resolved]
  - Abscess [Not Recovered/Not Resolved]
  - Suture related complication [None]
  - Drug hypersensitivity [None]

NARRATIVE: CASE EVENT DATE: 20131220
